FAERS Safety Report 5122960-6 (Version None)
Quarter: 2006Q4

REPORT INFORMATION
  Report Type: 
  Country: None (occurrence: None)
  Receive Date: 20061005
  Receipt Date: 20060921
  Transmission Date: 20070319
  Serious: Yes (Death)
  Sender: FDA-Public Use
  Company Number: T200600958

PATIENT
  Sex: Female

DRUGS (2)
  1. METHADONE HYDROCHLORIDE [Suspect]
     Indication: PAIN
     Dosage: 30 MG, TID, ORAL
     Route: 048
     Dates: start: 20030616, end: 20030617
  2. METHADONE(METHADONE) 10MG [Suspect]
     Dosage: 10 MG, TID

REACTIONS (2)
  - DRUG TOXICITY [None]
  - OVERDOSE [None]
